FAERS Safety Report 21103068 (Version 1)
Quarter: 2022Q3

REPORT INFORMATION
  Report Type: Spontaneous
  Country: KR (occurrence: KR)
  Receive Date: 20220720
  Receipt Date: 20220720
  Transmission Date: 20221026
  Serious: Yes (Hospitalization, Congenital Anomaly, Other)
  Sender: FDA-Public Use
  Company Number: KR--2022KRNVP00109

PATIENT
  Sex: Male
  Weight: 3.8 kg

DRUGS (2)
  1. DIGOXIN [Suspect]
     Active Substance: DIGOXIN
     Indication: Foetal tachyarrhythmia
     Route: 064
  2. DIGOXIN [Suspect]
     Active Substance: DIGOXIN
     Route: 064

REACTIONS (2)
  - Atrial septal defect [Unknown]
  - Patent ductus arteriosus [Unknown]
